FAERS Safety Report 7364661-X (Version None)
Quarter: 2011Q1

REPORT INFORMATION
  Report Type: 
  Country: None (occurrence: None)
  Receive Date: 20110321
  Receipt Date: 20110314
  Transmission Date: 20110831
  Serious: Yes (Other)
  Sender: FDA-Public Use
  Company Number: US-SANOFI-AVENTIS-2011SA001043

PATIENT
  Age: 69 Year
  Sex: Male
  Weight: 185 kg

DRUGS (2)
  1. NOVOLOG [Suspect]
     Dosage: 15-19 UNITS DEPENDING ON LEVELS, TWICE A DAY
  2. LANTUS [Suspect]
     Dosage: DOSE:50 UNIT(S)
     Route: 058
     Dates: start: 20100801

REACTIONS (3)
  - BLOOD GLUCOSE INCREASED [None]
  - LOSS OF CONSCIOUSNESS [None]
  - MEMORY IMPAIRMENT [None]
